FAERS Safety Report 18337607 (Version 1)
Quarter: 2020Q4

REPORT INFORMATION
  Report Type: Other
  Country: CA (occurrence: CA)
  Receive Date: 20201002
  Receipt Date: 20201002
  Transmission Date: 20210113
  Serious: Yes (Other)
  Sender: FDA-Public Use
  Company Number: CA-ASTELLAS-2020US034338

PATIENT
  Sex: Male

DRUGS (40)
  1. CICLOSPORIN [Suspect]
     Active Substance: CYCLOSPORINE
     Indication: IMMUNOSUPPRESSANT DRUG THERAPY
     Route: 065
  2. DARUNAVIR [Suspect]
     Active Substance: DARUNAVIR
     Indication: HIV INFECTION
     Route: 065
  3. LAMIVUDINE. [Suspect]
     Active Substance: LAMIVUDINE
     Indication: HIV INFECTION
     Route: 065
  4. LAMIVUDINE. [Suspect]
     Active Substance: LAMIVUDINE
     Route: 048
  5. MYCOPHENOLATE MOFETIL. [Suspect]
     Active Substance: MYCOPHENOLATE MOFETIL
     Indication: IMMUNOSUPPRESSANT DRUG THERAPY
     Dosage: UNK UNK, UNKNOWN FREQ.
     Route: 065
  6. RALTEGRAVIR. [Suspect]
     Active Substance: RALTEGRAVIR
     Indication: HIV INFECTION
     Route: 065
  7. RITONAVIR. [Suspect]
     Active Substance: RITONAVIR
     Indication: HIV INFECTION
     Route: 065
  8. TACROLIMUS. [Suspect]
     Active Substance: TACROLIMUS
     Indication: IMMUNOSUPPRESSANT DRUG THERAPY
     Dosage: 0.1 MG, UNKNOWN FREQ.
     Route: 065
  9. TACROLIMUS. [Interacting]
     Active Substance: TACROLIMUS
     Dosage: 0.2 MG, UNKNOWN FREQ.
     Route: 065
  10. ABACAVIR. [Suspect]
     Active Substance: ABACAVIR
     Route: 065
  11. COBICISTAT;ELVITEGRAVIR;EMTRICITABINE;TENOFOVIR ALAFENAMIDE FUMARATE [Suspect]
     Active Substance: COBICISTAT\ELVITEGRAVIR\EMTRICITABINE\TENOFOVIR ALAFENAMIDE FUMARATE
     Indication: HIV INFECTION
     Route: 065
  12. LAMIVUDINE. [Suspect]
     Active Substance: LAMIVUDINE
     Route: 065
  13. RITONAVIR. [Suspect]
     Active Substance: RITONAVIR
     Dosage: 2 DF (100 MG X2), ONCE DAILY
     Route: 065
  14. RITONAVIR. [Suspect]
     Active Substance: RITONAVIR
     Dosage: 2 DF (100 MG X2), ONCE DAILY
     Route: 065
  15. TACROLIMUS. [Interacting]
     Active Substance: TACROLIMUS
     Indication: IMMUNOSUPPRESSANT DRUG THERAPY
     Route: 065
  16. CICLOSPORIN [Suspect]
     Active Substance: CYCLOSPORINE
     Dosage: UNK UNK, UNKNOWN FREQ.
     Route: 065
  17. FOSAMPRENAVIR [Suspect]
     Active Substance: FOSAMPRENAVIR
     Indication: HIV INFECTION
     Route: 065
  18. RITONAVIR. [Suspect]
     Active Substance: RITONAVIR
     Dosage: 2 DF (100 MG X2), ONCE DAILY
     Route: 065
  19. STAVUDINE. [Suspect]
     Active Substance: STAVUDINE
     Indication: HIV INFECTION
     Route: 048
  20. TACROLIMUS. [Interacting]
     Active Substance: TACROLIMUS
     Dosage: 0.25 MG, ONCE DAILY
     Route: 065
  21. TACROLIMUS. [Interacting]
     Active Substance: TACROLIMUS
     Dosage: 0.07 MG, UNKNOWN FREQ.
     Route: 065
  22. TRUVADA [Suspect]
     Active Substance: EMTRICITABINE\TENOFOVIR DISOPROXIL FUMARATE
     Indication: HIV INFECTION
     Dosage: UNK UNK, UNKNOWN FREQ.
     Route: 065
  23. CICLOSPORIN [Suspect]
     Active Substance: CYCLOSPORINE
     Route: 065
  24. CICLOSPORIN [Suspect]
     Active Substance: CYCLOSPORINE
     Route: 065
  25. LAMIVUDINE. [Suspect]
     Active Substance: LAMIVUDINE
     Dosage: UNK UNK, UNKNOWN FREQ.
     Route: 065
  26. TRIZIVIR [Suspect]
     Active Substance: ABACAVIR SULFATE\LAMIVUDINE\ZIDOVUDINE
     Indication: HIV INFECTION
     Route: 065
  27. ZIDOVUDINE. [Suspect]
     Active Substance: ZIDOVUDINE
     Indication: HIV INFECTION
     Dosage: UNK UNK, UNKNOWN FREQ.
     Route: 065
  28. ABACAVIR. [Suspect]
     Active Substance: ABACAVIR
     Indication: HIV INFECTION
     Route: 065
  29. DARUNAVIR [Suspect]
     Active Substance: DARUNAVIR
     Route: 065
  30. RITONAVIR. [Suspect]
     Active Substance: RITONAVIR
     Dosage: 2 DF (100 MG X2), ONCE DAILY
     Route: 065
  31. CICLOSPORIN [Suspect]
     Active Substance: CYCLOSPORINE
     Route: 065
  32. ETRAVIRINE [Suspect]
     Active Substance: ETRAVIRINE
     Indication: HIV INFECTION
     Route: 065
  33. TACROLIMUS. [Interacting]
     Active Substance: TACROLIMUS
     Dosage: 0.1 MG, UNKNOWN FREQ.
     Route: 065
  34. ABACAVIR. [Suspect]
     Active Substance: ABACAVIR
     Dosage: UNK UNK, UNKNOWN FREQ.
     Route: 065
  35. ABACAVIR. [Suspect]
     Active Substance: ABACAVIR
     Route: 065
  36. ATAZANAVIR. [Suspect]
     Active Substance: ATAZANAVIR
     Indication: HIV INFECTION
     Route: 048
  37. CICLOSPORIN [Suspect]
     Active Substance: CYCLOSPORINE
     Dosage: UNK UNK, UNKNOWN FREQ.
     Route: 065
  38. CICLOSPORIN [Suspect]
     Active Substance: CYCLOSPORINE
     Dosage: UNK UNK, UNKNOWN FREQ.
     Route: 065
  39. DARUNAVIR [Suspect]
     Active Substance: DARUNAVIR
     Route: 065
  40. PREDNISONE. [Suspect]
     Active Substance: PREDNISONE
     Indication: IMMUNOSUPPRESSANT DRUG THERAPY
     Dosage: UNK UNK, UNKNOWN FREQ.
     Route: 065

REACTIONS (3)
  - Drug level increased [Unknown]
  - Drug interaction [Unknown]
  - Heart transplant rejection [Unknown]
